FAERS Safety Report 19919496 (Version 1)
Quarter: 2021Q4

REPORT INFORMATION
  Report Type: Spontaneous
  Country: US (occurrence: US)
  Receive Date: 20211005
  Receipt Date: 20211005
  Transmission Date: 20220303
  Serious: No
  Sender: FDA-Public Use
  Company Number: US-TEVA-2021-US-1960267

PATIENT
  Sex: Female

DRUGS (1)
  1. AMPHETAMINE\DEXTROAMPHETAMINE [Suspect]
     Active Substance: AMPHETAMINE\DEXTROAMPHETAMINE
     Route: 065

REACTIONS (5)
  - Fatigue [Unknown]
  - Disturbance in attention [Unknown]
  - Lethargy [Unknown]
  - Depressive symptom [Unknown]
  - Somnolence [Unknown]
